FAERS Safety Report 20807578 (Version 3)
Quarter: 2022Q2

REPORT INFORMATION
  Report Type: Spontaneous
  Country: AU (occurrence: AU)
  Receive Date: 20220510
  Receipt Date: 20220604
  Transmission Date: 20220721
  Serious: Yes (Life-Threatening, Hospitalization, Other)
  Sender: FDA-Public Use
  Company Number: AU-Accord-263174

PATIENT
  Age: 3 Decade
  Sex: Male

DRUGS (2)
  1. ETOPOSIDE [Suspect]
     Active Substance: ETOPOSIDE
     Indication: Osteosarcoma metastatic
     Dosage: 100 MG/M2/DAY, DAY 1-5,ON A 3 WEEKLY CYCLE
  2. IFOSFAMIDE [Suspect]
     Active Substance: IFOSFAMIDE
     Indication: Osteosarcoma metastatic
     Dosage: 1800 MG/M2/DAY, ON A 3 WEEKLY CYCLE

REACTIONS (12)
  - Intestinal perforation [Recovered/Resolved]
  - Neutropenic sepsis [Recovered/Resolved]
  - Tumour necrosis [Recovered/Resolved]
  - Febrile neutropenia [Recovered/Resolved]
  - Abscess intestinal [Recovered/Resolved]
  - Escherichia infection [Recovered/Resolved]
  - Anaemia [Unknown]
  - Hypotension [Recovered/Resolved]
  - Physical deconditioning [Unknown]
  - Bacteroides infection [Recovered/Resolved]
  - Weight decreased [Unknown]
  - Tumour rupture [Recovered/Resolved]
